FAERS Safety Report 9857477 (Version 2)
Quarter: 2014Q1

REPORT INFORMATION
  Report Type: Spontaneous
  Country: CH (occurrence: CH)
  Receive Date: 20140131
  Receipt Date: 20140205
  Transmission Date: 20141002
  Serious: Yes (Hospitalization, Other)
  Sender: FDA-Public Use
  Company Number: CH-009507513-1401CHE010338

PATIENT
  Age: 26 Year
  Sex: Female

DRUGS (3)
  1. REMERON [Suspect]
     Dosage: UNK
     Route: 048
     Dates: start: 20111220, end: 20111220
  2. LORAZEPAM [Suspect]
     Dosage: UNK
     Route: 048
     Dates: start: 20111220, end: 20111220
  3. QUETIAPINE FUMARATE [Suspect]
     Dosage: 40-60 DF AT ONCE
     Route: 048
     Dates: start: 20111220, end: 20111220

REACTIONS (7)
  - Tachycardia [Recovered/Resolved]
  - Endotracheal intubation [Unknown]
  - Disturbance in attention [Unknown]
  - Endotracheal intubation [Unknown]
  - Somnolence [Recovered/Resolved]
  - Suicide attempt [Recovered/Resolved]
  - Overdose [Unknown]
